FAERS Safety Report 6917897-3 (Version None)
Quarter: 2010Q3

REPORT INFORMATION
  Report Type: 
  Country: None (occurrence: None)
  Receive Date: 20100810
  Receipt Date: 20090810
  Transmission Date: 20110219
  Serious: No
  Sender: FDA-Public Use
  Company Number: US-PFIZER INC-2009236833

PATIENT

DRUGS (2)
  1. TOVIAZ [Suspect]
     Dosage: UNK
  2. POTASSIUM [Interacting]
     Dosage: UNK

REACTIONS (1)
  - DRUG INTERACTION [None]
